FAERS Safety Report 7588951-0 (Version None)
Quarter: 2011Q3

REPORT INFORMATION
  Report Type: 
  Country: None (occurrence: None)
  Receive Date: 20110705
  Receipt Date: 20110614
  Transmission Date: 20111222
  Serious: Yes (Other)
  Sender: FDA-Public Use
  Company Number: US-BAYER-2011-001164

PATIENT
  Sex: Female
  Weight: 75 kg

DRUGS (3)
  1. YAZ [Suspect]
     Indication: ACNE
     Dosage: UNK
     Dates: start: 20080101, end: 20090201
  2. YAZ [Suspect]
     Indication: CONTRACEPTION
  3. YAZ [Suspect]
     Indication: PREMENSTRUAL SYNDROME

REACTIONS (7)
  - CHOLECYSTITIS CHRONIC [None]
  - EMOTIONAL DISORDER [None]
  - GALLBLADDER DISORDER [None]
  - PAIN [None]
  - MENTAL DISORDER [None]
  - INJURY [None]
  - PSYCHIATRIC SYMPTOM [None]
